FAERS Safety Report 21646348 (Version 1)
Quarter: 2022Q4

REPORT INFORMATION
  Report Type: Spontaneous
  Country: US (occurrence: US)
  Receive Date: 20221126
  Receipt Date: 20221126
  Transmission Date: 20230113
  Serious: Yes (Hospitalization, Other)
  Sender: FDA-Public Use
  Company Number: US-Fresenius Medical Care Renal Therapies Group-FMC-2211-001807

PATIENT
  Age: 64 Year
  Sex: Male
  Weight: 95 kg

DRUGS (3)
  1. DELFLEX WITH DEXTROSE 1.5% LOW MAGNESIUM LOW CALCIUM [Suspect]
     Active Substance: CALCIUM CHLORIDE\DEXTROSE\MAGNESIUM CHLORIDE\SODIUM CHLORIDE\SODIUM LACTATE
     Indication: End stage renal disease
     Dosage: EXCHANGES = 5, FILL VOLUME = 2400 ML, DWELL TIME = 1.5 HOURS, LAST FILL = 500 ML, DAYTIME DWELL = N/
     Route: 033
  2. DELFLEX WITH DEXTROSE 2.5% LOW MAGNESIUM LOW CALCIUM [Suspect]
     Active Substance: CALCIUM CHLORIDE\DEXTROSE\MAGNESIUM CHLORIDE\SODIUM CHLORIDE\SODIUM LACTATE
     Indication: End stage renal disease
     Dosage: EXCHANGES = 5, FILL VOLUME = 2400 ML, DWELL TIME = 1.5 HOURS, LAST FILL = 500 ML, DAYTIME DWELL = N/
     Route: 033
  3. DELFLEX WITH DEXTROSE 4.25% LOW MAGNESIUM LOW CALCIUM [Suspect]
     Active Substance: CALCIUM CHLORIDE\DEXTROSE\MAGNESIUM CHLORIDE\SODIUM CHLORIDE\SODIUM LACTATE
     Indication: End stage renal disease
     Dosage: EXCHANGES = 5, FILL VOLUME = 2400 ML, DWELL TIME = 1.5 HOURS, LAST FILL = 500 ML, DAYTIME DWELL = N/
     Route: 033

REACTIONS (2)
  - Fungal peritonitis [Recovering/Resolving]
  - Catheter site infection [Recovering/Resolving]

NARRATIVE: CASE EVENT DATE: 20221024
